FAERS Safety Report 7277092 (Version 5)
Quarter: 2014Q2

REPORT INFORMATION
  Report Type: Spontaneous
  Country: US (occurrence: US)
  Receive Date: 20100212
  Receipt Date: 20140625
  Transmission Date: 20141212
  Serious: Yes (Other)
  Sender: FDA-Public Use
  Company Number: US-PFIZER INC-2010016199

PATIENT
  Age: 75 Year
  Sex: Female
  Weight: 63.49 kg

DRUGS (9)
  1. LYRICA [Suspect]
     Indication: FIBROMYALGIA
     Dosage: 75 MG, 3X/DAY
     Dates: start: 2008, end: 200908
  2. NEURONTIN [Suspect]
     Indication: FIBROMYALGIA
  3. OXYCONTIN [Suspect]
     Indication: ARTHRITIS
     Dosage: 40 MG, 3X/DAY
     Route: 048
     Dates: end: 200908
  4. PERCOCET [Suspect]
     Indication: ARTHRITIS
     Dosage: 10 MG, 1X/DAY
     Route: 048
     Dates: end: 200908
  5. CYMBALTA [Concomitant]
     Indication: FIBROMYALGIA
     Dosage: UNK
  6. MELOXICAM [Concomitant]
     Indication: ARTHRITIS
     Dosage: UNK
  7. PROVIGIL [Concomitant]
     Indication: FATIGUE
     Dosage: UNK
  8. NUVIGIL [Concomitant]
     Indication: FATIGUE
     Dosage: UNK
  9. LEVOXYL [Concomitant]
     Indication: THYROID DISORDER
     Dosage: UNK

REACTIONS (11)
  - Cardiac disorder [Unknown]
  - Fall [Unknown]
  - Upper limb fracture [Unknown]
  - Cataract [Unknown]
  - Visual impairment [Unknown]
  - Vision blurred [Not Recovered/Not Resolved]
  - Eye pain [Not Recovered/Not Resolved]
  - Migraine [Not Recovered/Not Resolved]
  - Dizziness [Unknown]
  - Drug ineffective [Not Recovered/Not Resolved]
  - Weight increased [Unknown]
